FAERS Safety Report 9006102 (Version 2)
Quarter: 2013Q1

REPORT INFORMATION
  Report Type: Spontaneous
  Country: US (occurrence: US)
  Receive Date: 20130109
  Receipt Date: 20130111
  Transmission Date: 20140127
  Serious: Yes (Hospitalization, Other)
  Sender: FDA-Public Use
  Company Number: PHHY2013US001573

PATIENT
  Age: 29 Year
  Sex: Female

DRUGS (5)
  1. BUPROPION [Suspect]
  2. AMPHETAMINE [Concomitant]
     Indication: ATTENTION DEFICIT/HYPERACTIVITY DISORDER
  3. DEXTROAMPHETAMINE [Concomitant]
     Indication: ATTENTION DEFICIT/HYPERACTIVITY DISORDER
  4. GABAPENTIN [Concomitant]
     Indication: MOVEMENT DISORDER
     Dosage: 2100 MG, UNK
  5. LAXATIVES [Concomitant]

REACTIONS (18)
  - Cardiogenic shock [Unknown]
  - Hypotension [Unknown]
  - Dizziness [Unknown]
  - Ventricular hypokinesia [Unknown]
  - Ejection fraction decreased [Unknown]
  - Mental disorder [Recovered/Resolved]
  - Metabolic acidosis [Unknown]
  - Mydriasis [Unknown]
  - Pupillary reflex impaired [Unknown]
  - Areflexia [Unknown]
  - Corneal reflex decreased [Unknown]
  - Respiratory distress [Unknown]
  - Grand mal convulsion [Recovered/Resolved]
  - Fall [Unknown]
  - Unresponsive to stimuli [Recovered/Resolved]
  - Sinus tachycardia [Unknown]
  - Electrocardiogram QT prolonged [Unknown]
  - Overdose [Unknown]
